FAERS Safety Report 14365219 (Version 1)
Quarter: 2018Q1

REPORT INFORMATION
  Report Type: Other
  Country: JP (occurrence: JP)
  Receive Date: 20180108
  Receipt Date: 20180108
  Transmission Date: 20180509
  Serious: Yes (Other)
  Sender: FDA-Public Use
  Company Number: JP-AJANTA PHARMA USA INC.-2039551

PATIENT
  Age: 6 Year
  Sex: Female

DRUGS (3)
  1. ALL-TRANS RETINOIC ACID [Suspect]
     Active Substance: TRETINOIN
  2. MICAFUNGIN [Concomitant]
     Active Substance: MICAFUNGIN
  3. VORICONAZOLE. [Suspect]
     Active Substance: VORICONAZOLE
     Indication: FUNGAL INFECTION

REACTIONS (2)
  - Drug interaction [Recovered/Resolved]
  - Hypercalcaemia [Recovered/Resolved]
